FAERS Safety Report 7882597-2 (Version None)
Quarter: 2011Q4

REPORT INFORMATION
  Report Type: 
  Country: None (occurrence: None)
  Receive Date: 20111101
  Receipt Date: 20110616
  Transmission Date: 20120403
  Serious: No
  Sender: FDA-Public Use
  Company Number: US-AMGEN-USASP2011031007

PATIENT
  Age: 53 Year
  Sex: Female
  Weight: 90.249 kg

DRUGS (6)
  1. ENBREL [Suspect]
     Indication: PRODUCT USED FOR UNKNOWN INDICATION
     Dosage: 50 MG, QWK
     Route: 058
  2. METOPROLOL TARTRATE [Concomitant]
     Dosage: 25 MG, UNK
  3. BENAZEPRIL HYDROCHLORIDE [Concomitant]
     Dosage: 10 MG, UNK
  4. VITAMIN C                          /00008001/ [Concomitant]
     Dosage: 1000 MG, UNK
  5. VITAMIN D [Concomitant]
     Dosage: UNK
  6. CALCIUM [Concomitant]
     Dosage: UNK

REACTIONS (2)
  - STAPHYLOCOCCAL INFECTION [None]
  - BRONCHITIS [None]
